FAERS Safety Report 5605099-2 (Version None)
Quarter: 2008Q1

REPORT INFORMATION
  Report Type: 
  Country: None (occurrence: None)
  Receive Date: 20080128
  Receipt Date: 20080116
  Transmission Date: 20080703
  Serious: Yes (Hospitalization, Other)
  Sender: FDA-Public Use
  Company Number: IT-MERCK-0801ITA00020

PATIENT
  Age: 40 Year
  Sex: Male

DRUGS (6)
  1. CRIXIVAN [Suspect]
     Indication: HIV INFECTION
     Route: 048
  2. STAVUDINE [Suspect]
     Indication: HIV INFECTION
     Route: 065
  3. LAMIVUDINE [Suspect]
     Indication: HIV INFECTION
     Route: 065
  4. ABACAVIR SULFATE [Suspect]
     Indication: HIV INFECTION
     Route: 065
  5. ZIDOVUDINE [Suspect]
     Indication: HIV INFECTION
     Route: 065
  6. FENOFIBRATE [Concomitant]
     Indication: BLOOD TRIGLYCERIDES INCREASED
     Route: 065

REACTIONS (7)
  - BLOOD TRIGLYCERIDES INCREASED [None]
  - HYPERTENSIVE CRISIS [None]
  - LEFT VENTRICULAR HYPERTROPHY [None]
  - LIPOATROPHY [None]
  - LIPOMATOSIS [None]
  - RENAL FAILURE [None]
  - REVERSIBLE POSTERIOR LEUKOENCEPHALOPATHY SYNDROME [None]
